FAERS Safety Report 20030152 (Version 1)
Quarter: 2021Q4

REPORT INFORMATION
  Report Type: Report from Study
  Country: CA (occurrence: CA)
  Receive Date: 20211103
  Receipt Date: 20211103
  Transmission Date: 20220303
  Serious: Yes (Other)
  Sender: FDA-Public Use
  Company Number: CA-JNJFOC-20200313740

PATIENT
  Age: 25 Year
  Sex: Female

DRUGS (3)
  1. REMICADE [Suspect]
     Active Substance: INFLIXIMAB
     Indication: Colitis ulcerative
     Dosage: MD REQUESTED TO RESTART REMICADE. DOSAGE OF 5MG/KG EVERY 7 WEEKS REQUESTED
     Route: 042
     Dates: start: 20110924
  2. ZOPICLONE [Concomitant]
     Active Substance: ZOPICLONE
     Indication: Product used for unknown indication
     Dosage: AT BEDTIME
     Route: 065
  3. CLONAZEPAM [Concomitant]
     Active Substance: CLONAZEPAM
     Indication: Product used for unknown indication
     Dosage: AS REQUIRED
     Route: 065

REACTIONS (4)
  - Colitis ulcerative [Unknown]
  - Vitamin D deficiency [Unknown]
  - Infectious mononucleosis [Recovering/Resolving]
  - Product substitution issue [Unknown]

NARRATIVE: CASE EVENT DATE: 20200101
